FAERS Safety Report 9052271 (Version 1)
Quarter: 2013Q1

REPORT INFORMATION
  Report Type: Spontaneous
  Country: CH (occurrence: CH)
  Receive Date: 20130206
  Receipt Date: 20130206
  Transmission Date: 20140127
  Serious: Yes (Hospitalization, Other)
  Sender: FDA-Public Use
  Company Number: CH-UCBSA-077524

PATIENT
  Age: 60 Year
  Sex: Female

DRUGS (14)
  1. VIMPAT [Suspect]
     Route: 048
     Dates: start: 20121116, end: 20121225
  2. KEPPRA [Suspect]
     Dosage: UNKNOWN DOSE
  3. PHENYTOIN [Suspect]
     Route: 048
     Dates: start: 20121116, end: 20121225
  4. LAMICTAL [Suspect]
     Dosage: UNKNOWN DOSE
     Dates: start: 201211
  5. ALDACTONE [Concomitant]
     Route: 048
  6. TENORMIN [Concomitant]
     Route: 048
  7. KONAKION [Concomitant]
     Route: 048
  8. PANTOZOL [Concomitant]
     Route: 048
  9. BENERVA [Concomitant]
     Route: 048
  10. RISPERDAL [Concomitant]
     Route: 048
  11. DORMICIUM [Concomitant]
     Dosage: DOSE: 2 MG
     Route: 042
  12. VALIUM [Concomitant]
     Dosage: DOSE: 5 MG
  13. CLONAZEPAM [Concomitant]
     Dosage: UNKNOWN DOSE
  14. QUENTIAPINE [Concomitant]
     Dosage: UNKNOWN DOSE

REACTIONS (4)
  - Stevens-Johnson syndrome [Recovering/Resolving]
  - Status epilepticus [Recovered/Resolved]
  - Encephalopathy [Recovering/Resolving]
  - Cutaneous vasculitis [Recovering/Resolving]
